FAERS Safety Report 10602023 (Version 3)
Quarter: 2014Q4

REPORT INFORMATION
  Report Type: Report from Study
  Country: KR (occurrence: KR)
  Receive Date: 20141124
  Receipt Date: 20141223
  Transmission Date: 20150529
  Serious: Yes (Hospitalization, Other)
  Sender: FDA-Public Use
  Company Number: KR-ACTELION-A-CH2014-106347

PATIENT
  Age: 26 Year
  Sex: Female
  Weight: 54 kg

DRUGS (10)
  1. SOLON [Concomitant]
     Active Substance: SOFALCONE
     Dosage: 12.5 MG, UNK
     Dates: start: 20141007
  2. DANAZOL. [Suspect]
     Active Substance: DANAZOL
     Indication: THROMBOCYTOPENIA
     Dosage: UNK
     Route: 065
     Dates: start: 20141019, end: 20141103
  3. SUCRALFATE. [Concomitant]
     Active Substance: SUCRALFATE
     Dosage: UNK
     Dates: start: 20140918
  4. RABEPRAZOLE [Concomitant]
     Active Substance: RABEPRAZOLE
     Dosage: UNK
     Dates: start: 20141006
  5. AZAPRIN [Concomitant]
     Dosage: 100 MG, UNK
     Dates: start: 20141001
  6. HYDROXYCHLOROQUINE [Concomitant]
     Active Substance: HYDROXYCHLOROQUINE
     Dosage: UNK
     Dates: start: 20140911
  7. HALOXIN [Concomitant]
     Dosage: 400 MG, UNK
     Dates: start: 20140911
  8. ULCERMIN [Concomitant]
     Active Substance: SUCRALFATE
     Dosage: UNK
     Dates: start: 20140919
  9. RABIET [Concomitant]
     Dosage: UNK
     Dates: start: 20141006
  10. MACITENTAN [Suspect]
     Active Substance: MACITENTAN
     Indication: PULMONARY ARTERIAL HYPERTENSION
     Dosage: 10 MG, QD
     Route: 048
     Dates: start: 20141008, end: 20141104

REACTIONS (10)
  - Hyperglycaemia [Unknown]
  - Anaemia [Unknown]
  - Thrombocytopenia [Recovered/Resolved with Sequelae]
  - Alanine aminotransferase increased [Recovered/Resolved]
  - Platelet count decreased [Recovered/Resolved with Sequelae]
  - Salmonella sepsis [Recovered/Resolved with Sequelae]
  - Transaminases increased [Recovered/Resolved]
  - Aspartate aminotransferase increased [Recovered/Resolved]
  - Haemoglobin decreased [Unknown]
  - Transfusion [Unknown]

NARRATIVE: CASE EVENT DATE: 20141014
